FAERS Safety Report 6524067-X (Version None)
Quarter: 2009Q4

REPORT INFORMATION
  Report Type: 
  Country: None (occurrence: None)
  Receive Date: 20091230
  Receipt Date: 20091230
  Transmission Date: 20100525
  Serious: Yes (Other)
  Sender: FDA-Public Use
  Company Number: None

PATIENT
  Sex: Male
  Weight: 88.905 kg

DRUGS (1)
  1. ZELNORM [Suspect]

REACTIONS (7)
  - ANXIETY [None]
  - CORONARY ARTERY DISEASE [None]
  - HEART RATE ABNORMAL [None]
  - HYPERTENSION [None]
  - LABILE BLOOD PRESSURE [None]
  - LOSS OF EMPLOYMENT [None]
  - SYNCOPE [None]
